FAERS Safety Report 25407485 (Version 1)
Quarter: 2025Q2

REPORT INFORMATION
  Report Type: Spontaneous
  Country: US (occurrence: None)
  Receive Date: 20250605
  Receipt Date: 20250605
  Transmission Date: 20250717
  Serious: Yes (Life-Threatening, Disabling)
  Sender: FDA-CTU
  Company Number: None

PATIENT
  Age: 35 Year
  Sex: Female
  Weight: 49.5 kg

DRUGS (1)
  1. FLUOXETINE [Suspect]
     Active Substance: FLUOXETINE HYDROCHLORIDE
     Indication: Stress
     Route: 048
     Dates: start: 20190325, end: 20230115

REACTIONS (7)
  - Loss of libido [None]
  - Rash [None]
  - Withdrawal syndrome [None]
  - Impaired work ability [None]
  - Hormone level abnormal [None]
  - Blood cholesterol increased [None]
  - Cortisol increased [None]

NARRATIVE: CASE EVENT DATE: 20230225
